FAERS Safety Report 24572487 (Version 1)
Quarter: 2024Q4

REPORT INFORMATION
  Report Type: Spontaneous
  Country: DE (occurrence: DE)
  Receive Date: 20241101
  Receipt Date: 20241101
  Transmission Date: 20250115
  Serious: Yes (Hospitalization, Other)
  Sender: MERCK
  Company Number: DE-009507513-2410DEU013765

PATIENT
  Age: 77 Year
  Sex: Male
  Weight: 56 kg

DRUGS (1)
  1. PEMBROLIZUMAB [Suspect]
     Active Substance: PEMBROLIZUMAB
     Indication: Colorectal cancer
     Dates: start: 202204, end: 202409

REACTIONS (13)
  - Dysphagia [Unknown]
  - Abnormal loss of weight [Recovered/Resolved]
  - Fistula of small intestine [Recovered/Resolved]
  - Cachexia [Recovered/Resolved]
  - Cardiac failure [Unknown]
  - Vomiting [Unknown]
  - Asthenia [Unknown]
  - Gait disturbance [Unknown]
  - Gastritis [Unknown]
  - Duodenitis [Unknown]
  - Colorectal adenoma [Unknown]
  - Abdominal distension [Unknown]
  - Gastrointestinal hypermotility [Unknown]

NARRATIVE: CASE EVENT DATE: 20220101
